FAERS Safety Report 17827087 (Version 1)
Quarter: 2020Q2

REPORT INFORMATION
  Report Type: Report from Study
  Country: None (occurrence: SI)
  Receive Date: 20200526
  Receipt Date: 20200526
  Transmission Date: 20200714
  Serious: Yes (Hospitalization, Other)
  Sender: FDA-Public Use
  Company Number: SI-ABBVIE-20K-261-3414263-00

PATIENT
  Sex: Female
  Weight: 70 kg

DRUGS (4)
  1. CONCOR [Concomitant]
     Active Substance: BISOPROLOL FUMARATE
     Indication: PRODUCT USED FOR UNKNOWN INDICATION
     Dosage: AT THE EVENING
  2. PAROXAT [Concomitant]
     Active Substance: PAROXETINE HYDROCHLORIDE
     Indication: PRODUCT USED FOR UNKNOWN INDICATION
     Dosage: AT THE EVENING
  3. DUODOPA [Suspect]
     Active Substance: CARBIDOPA\LEVODOPA
     Indication: PARKINSON^S DISEASE
     Route: 050
     Dates: start: 2017
  4. RIVOTRIL [Concomitant]
     Active Substance: CLONAZEPAM
     Indication: PRODUCT USED FOR UNKNOWN INDICATION
     Dosage: AT THE EVENING

REACTIONS (8)
  - Hallucination [Recovering/Resolving]
  - Illusion [Recovering/Resolving]
  - Psychomotor hyperactivity [Recovering/Resolving]
  - Spinal operation [Unknown]
  - Weight decreased [Recovering/Resolving]
  - Stoma site infection [Recovering/Resolving]
  - Abdominal pain upper [Recovering/Resolving]
  - Stoma site discharge [Recovering/Resolving]
